FAERS Safety Report 4915115-9 (Version None)
Quarter: 2006Q1

REPORT INFORMATION
  Report Type: 
  Country: None (occurrence: None)
  Receive Date: 20060215
  Receipt Date: 20060215
  Transmission Date: 20060701
  Serious: Yes (Life-Threatening, Hospitalization)
  Sender: FDA-Public Use
  Company Number: None

PATIENT
  Sex: Male
  Weight: 45.3597 kg

DRUGS (1)
  1. ADDERALL XR 20 [Suspect]
     Indication: ATTENTION DEFICIT/HYPERACTIVITY DISORDER
     Dosage: 30  ONCE A DAY  PO
     Route: 048
     Dates: start: 20040906, end: 20060114

REACTIONS (9)
  - AGGRESSION [None]
  - ANGINA PECTORIS [None]
  - EDUCATIONAL PROBLEM [None]
  - FIGHT IN SCHOOL [None]
  - GROWING PAINS [None]
  - HOMICIDAL IDEATION [None]
  - IRRITABILITY [None]
  - SUICIDAL IDEATION [None]
  - THINKING ABNORMAL [None]
